FAERS Safety Report 4918102-X (Version None)
Quarter: 2006Q1

REPORT INFORMATION
  Report Type: 
  Country: None (occurrence: None)
  Receive Date: 20060215
  Receipt Date: 20060131
  Transmission Date: 20060701
  Serious: Yes (Hospitalization)
  Sender: FDA-Public Use
  Company Number: PAR_0498_2006

PATIENT
  Age: 58 Year
  Sex: Male

DRUGS (6)
  1. VERAPAMIL [Suspect]
     Indication: VENTRICULAR ARRHYTHMIA
     Dosage: 240 MG ONCE PO
     Route: 048
  2. DIGOXIN [Concomitant]
  3. WARFARIN SODIUM [Concomitant]
  4. CALCIUM CHLORIDE [Concomitant]
  5. ATROPINE [Concomitant]
  6. COLLOIDS [Concomitant]

REACTIONS (11)
  - CONFUSIONAL STATE [None]
  - CYANOSIS [None]
  - DIZZINESS [None]
  - DRUG LEVEL BELOW THERAPEUTIC [None]
  - DRUG TOXICITY [None]
  - GENERAL PHYSICAL HEALTH DETERIORATION [None]
  - HYPOTENSION [None]
  - PERIPHERAL COLDNESS [None]
  - PULSE ABSENT [None]
  - VENTRICULAR DYSFUNCTION [None]
  - VOMITING [None]
